FAERS Safety Report 15842787 (Version 1)
Quarter: 2019Q1

REPORT INFORMATION
  Report Type: Spontaneous
  Country: FR (occurrence: FR)
  Receive Date: 20190118
  Receipt Date: 20190118
  Transmission Date: 20190417
  Serious: Yes (Other)
  Sender: FDA-Public Use
  Company Number: FR-TEVA-2019-FR-999460

PATIENT
  Age: 91 Year
  Sex: Female
  Weight: 58 kg

DRUGS (1)
  1. ACIDE ALENDRONIQUE BIOGARAN 70 MG COMPRIME [Suspect]
     Active Substance: ALENDRONATE SODIUM
     Indication: OSTEOPOROTIC FRACTURE
     Dosage: UNKNOWN DOSE
     Route: 065

REACTIONS (1)
  - Visual impairment [Unknown]
